FAERS Safety Report 10358261 (Version 1)
Quarter: 2014Q3

REPORT INFORMATION
  Report Type: Spontaneous
  Country: FR (occurrence: FR)
  Receive Date: 20140801
  Receipt Date: 20140801
  Transmission Date: 20150326
  Serious: Yes (Other)
  Sender: FDA-Public Use
  Company Number: FR-GE HEALTHCARE MEDICAL DIAGNOSTICS-OMPQ-PR-1407S-0840

PATIENT
  Age: 52 Year
  Sex: Male

DRUGS (3)
  1. OMNIPAQUE [Suspect]
     Active Substance: IOHEXOL
     Indication: FISTULA
     Dosage: DOSE NOT REPORTED
     Route: 042
     Dates: start: 20130313, end: 20130313
  2. OMNIPAQUE [Suspect]
     Active Substance: IOHEXOL
     Indication: DIAGNOSTIC PROCEDURE
  3. OMNIPAQUE [Suspect]
     Active Substance: IOHEXOL
     Indication: THERAPEUTIC PROCEDURE

REACTIONS (3)
  - Hypotension [Recovered/Resolved]
  - Malaise [Recovered/Resolved]
  - Dyspnoea [Recovered/Resolved]

NARRATIVE: CASE EVENT DATE: 20130313
